FAERS Safety Report 24946879 (Version 1)
Quarter: 2025Q1

REPORT INFORMATION
  Report Type: Spontaneous
  Country: US (occurrence: US)
  Receive Date: 20250210
  Receipt Date: 20250210
  Transmission Date: 20250408
  Serious: Yes (Death, Hospitalization, Other)
  Sender: DR REDDYS
  Company Number: US-DRL-USA-USA/2025/02/001883

PATIENT
  Age: 68 Year
  Sex: Male

DRUGS (18)
  1. BENDAMUSTINE [Suspect]
     Active Substance: BENDAMUSTINE
     Indication: Marginal zone lymphoma
  2. BENDAMUSTINE [Suspect]
     Active Substance: BENDAMUSTINE
     Indication: Diffuse large B-cell lymphoma
  3. LENALIDOMIDE [Suspect]
     Active Substance: LENALIDOMIDE
     Indication: Marginal zone lymphoma
  4. LENALIDOMIDE [Suspect]
     Active Substance: LENALIDOMIDE
     Indication: Diffuse large B-cell lymphoma
  5. MOXIFLOXACIN [Suspect]
     Active Substance: MOXIFLOXACIN
     Indication: Rhodococcus infection
  6. MINOCYCLINE [Suspect]
     Active Substance: MINOCYCLINE HYDROCHLORIDE
     Indication: Rhodococcus infection
  7. RITUXIMAB [Suspect]
     Active Substance: RITUXIMAB
     Indication: Marginal zone lymphoma
  8. RITUXIMAB [Suspect]
     Active Substance: RITUXIMAB
     Indication: Diffuse large B-cell lymphoma
  9. AZITHROMYCIN [Suspect]
     Active Substance: AZITHROMYCIN
     Indication: Rhodococcus infection
  10. TAFASITAMAB-CXIX [Suspect]
     Active Substance: TAFASITAMAB-CXIX
     Indication: Marginal zone lymphoma
  11. TAFASITAMAB-CXIX [Suspect]
     Active Substance: TAFASITAMAB-CXIX
     Indication: Diffuse large B-cell lymphoma
  12. ODRONEXTAMAB [Concomitant]
     Active Substance: ODRONEXTAMAB
     Indication: Marginal zone lymphoma
  13. ODRONEXTAMAB [Concomitant]
     Active Substance: ODRONEXTAMAB
     Indication: Diffuse large B-cell lymphoma
  14. VANCOMYCIN [Concomitant]
     Active Substance: VANCOMYCIN
     Indication: Rhodococcus infection
  15. PIPERACILLIN SODIUM\TAZOBACTAM SODIUM [Concomitant]
     Active Substance: PIPERACILLIN SODIUM\TAZOBACTAM SODIUM
     Indication: Rhodococcus infection
  16. COTRIMOXAZOLE [Concomitant]
     Active Substance: SULFAMETHOXAZOLE\TRIMETHOPRIM
     Indication: Rhodococcus infection
  17. IMIPENEM [Concomitant]
     Active Substance: IMIPENEM
     Indication: Rhodococcus infection
  18. RIFAMPIN [Concomitant]
     Active Substance: RIFAMPIN
     Indication: Rhodococcus infection

REACTIONS (7)
  - Drug ineffective [Fatal]
  - Malignant neoplasm progression [Fatal]
  - COVID-19 [Fatal]
  - Rhodococcus infection [Fatal]
  - Pancytopenia [Fatal]
  - Electrocardiogram QT prolonged [Unknown]
  - Product use in unapproved indication [Unknown]
